FAERS Safety Report 10156614 (Version 1)
Quarter: 2014Q2

REPORT INFORMATION
  Report Type: Spontaneous
  Country: US (occurrence: None)
  Receive Date: 20140505
  Receipt Date: 20140505
  Transmission Date: 20141212
  Serious: Yes (Other)
  Sender: FDA-Public Use
  Company Number: 2014-00062

PATIENT
  Age: 24 Year
  Sex: Female
  Weight: 77.11 kg

DRUGS (2)
  1. ZICAM EXTREME CONGESTION RELIEF [Suspect]
     Indication: NASAL CONGESTION
     Dosage: 1 SPRAY PER NOSTRIL EVERY 3 HOURS
     Route: 045
     Dates: start: 201401, end: 20140427
  2. PRENATAL VITAMIN [Concomitant]

REACTIONS (4)
  - Drug dependence [None]
  - Nasal congestion [None]
  - Condition aggravated [None]
  - Exposure during pregnancy [None]
